FAERS Safety Report 5258044-6 (Version None)
Quarter: 2007Q1

REPORT INFORMATION
  Report Type: 
  Country: None (occurrence: None)
  Receive Date: 20070302
  Receipt Date: 20060703
  Transmission Date: 20070707
  Serious: Yes (Hospitalization)
  Sender: FDA-Public Use
  Company Number: DSA_29411_2007

PATIENT
  Age: 76 Year
  Sex: Male

DRUGS (7)
  1. MONO-TILDIEM [Suspect]
     Dosage: 300 MG QD PO
     Route: 048
     Dates: start: 20020601
  2. KARDEGIC [Suspect]
     Dosage: 160 MG QD PO
     Route: 048
     Dates: start: 19961201
  3. OMIX [Suspect]
     Dosage: 0.4 MG QD PO
     Route: 048
  4. VERCYTE [Suspect]
     Dosage: 25 MG QD PO
     Route: 048
     Dates: start: 20010101, end: 20060215
  5. PRAVASTATIN [Suspect]
     Indication: POLYCYTHAEMIA
     Dosage: 20 MG QD PO
     Route: 048
     Dates: start: 20000801
  6. ALFACALCIDOL/1-ALPHA-HYDROXYCOLECALCIFEROL [Suspect]
     Indication: POLYCYTHAEMIA
     Dosage: 20 MG QD PO
     Route: 048
     Dates: start: 20000801
  7. NITRODERM [Concomitant]

REACTIONS (6)
  - ABDOMINAL STRANGULATED HERNIA [None]
  - CEREBROVASCULAR ACCIDENT [None]
  - GASTRIC ULCER [None]
  - GASTRITIS [None]
  - GENERAL PHYSICAL HEALTH DETERIORATION [None]
  - PREPYLORIC STENOSIS [None]
